FAERS Safety Report 6380846-3 (Version None)
Quarter: 2009Q3

REPORT INFORMATION
  Report Type: 
  Country: None (occurrence: None)
  Receive Date: 20090929
  Receipt Date: 20090924
  Transmission Date: 20100115
  Serious: Yes (Hospitalization, Other)
  Sender: FDA-Public Use
  Company Number: A0807251A

PATIENT
  Age: 77 Year
  Sex: Male

DRUGS (1)
  1. ADVAIR DISKUS 100/50 [Suspect]
     Indication: CHRONIC OBSTRUCTIVE PULMONARY DISEASE
     Route: 055
     Dates: start: 20090314, end: 20090319

REACTIONS (6)
  - ADVERSE EVENT [None]
  - FEAR [None]
  - HALLUCINATION [None]
  - ILL-DEFINED DISORDER [None]
  - NERVOUSNESS [None]
  - TREMOR [None]
